FAERS Safety Report 10354136 (Version 2)
Quarter: 2014Q3

REPORT INFORMATION
  Report Type: Report from Study
  Country: CA (occurrence: CA)
  Receive Date: 20140731
  Receipt Date: 20140731
  Transmission Date: 20150326
  Serious: Yes (Hospitalization, Other)
  Sender: FDA-Public Use
  Company Number: PHHY2012CA016734

PATIENT
  Age: 15 Year
  Sex: Male
  Weight: 102.4 kg

DRUGS (4)
  1. EXTAVIA [Suspect]
     Active Substance: INTERFERON BETA-1B
     Dosage: 8 MIU, QOD
     Route: 058
     Dates: start: 20120220, end: 20120708
  2. EXTAVIA [Suspect]
     Active Substance: INTERFERON BETA-1B
     Dosage: 8 MIU, QOD
     Route: 058
     Dates: start: 20121103, end: 201405
  3. PLASMAPHERESIS [Concomitant]
     Dosage: UNK UKN, UNK
  4. EXTAVIA [Suspect]
     Active Substance: INTERFERON BETA-1B
     Indication: RELAPSING-REMITTING MULTIPLE SCLEROSIS
     Dosage: UNK UKN, UNK
     Route: 058
     Dates: start: 2011

REACTIONS (8)
  - General physical health deterioration [Unknown]
  - Depression [Unknown]
  - Relapsing-remitting multiple sclerosis [Unknown]
  - Abasia [Unknown]
  - Hemiplegia [Unknown]
  - Myalgia [Unknown]
  - Chills [Unknown]
  - Drug ineffective [Unknown]

NARRATIVE: CASE EVENT DATE: 20121106
